FAERS Safety Report 14546616 (Version 1)
Quarter: 2018Q1

REPORT INFORMATION
  Report Type: Report from Study
  Country: None (occurrence: CA)
  Receive Date: 20180219
  Receipt Date: 20180219
  Transmission Date: 20180509
  Serious: Yes (Hospitalization)
  Sender: FDA-Public Use
  Company Number: CA-ABBVIE-18K-028-2246098-00

PATIENT
  Sex: Female

DRUGS (1)
  1. HUMIRA [Suspect]
     Active Substance: ADALIMUMAB
     Indication: COLITIS ULCERATIVE
     Route: 058
     Dates: start: 20171004, end: 20180111

REACTIONS (12)
  - Fear of falling [Recovered/Resolved]
  - Chills [Recovered/Resolved]
  - Myalgia [Unknown]
  - Musculoskeletal pain [Recovered/Resolved]
  - Muscular weakness [Recovered/Resolved]
  - Neck pain [Recovered/Resolved]
  - Musculoskeletal stiffness [Recovered/Resolved]
  - Hyperhidrosis [Recovered/Resolved]
  - Malaise [Recovered/Resolved]
  - Pyrexia [Recovered/Resolved]
  - Blood creatine phosphokinase increased [Recovered/Resolved]
  - Headache [Not Recovered/Not Resolved]
